FAERS Safety Report 23456877 (Version 1)
Quarter: 2024Q1

REPORT INFORMATION
  Report Type: Spontaneous
  Country: DE (occurrence: DE)
  Receive Date: 20240130
  Receipt Date: 20240130
  Transmission Date: 20240410
  Serious: Yes (Hospitalization)
  Sender: FDA-Public Use
  Company Number: DE-UCBSA-2024002491

PATIENT
  Age: 44 Year
  Sex: Male

DRUGS (3)
  1. LAMOTRIGINE [Suspect]
     Active Substance: LAMOTRIGINE
     Indication: Intracranial aneurysm
     Dosage: UNK
     Route: 065
  2. KEPPRA [Suspect]
     Active Substance: LEVETIRACETAM
     Indication: Intracranial aneurysm
     Dosage: 3000 MILLIGRAM DAILY
     Route: 065
  3. PENICILLIN [Concomitant]
     Active Substance: PENICILLIN
     Indication: Urinary tract infection
     Dosage: UNK
     Route: 065

REACTIONS (5)
  - Urinary tract infection [Unknown]
  - Hypersensitivity [Unknown]
  - Aggression [Unknown]
  - Agitation [Unknown]
  - Product use in unapproved indication [Unknown]
